FAERS Safety Report 5412723-6 (Version None)
Quarter: 2007Q3

REPORT INFORMATION
  Report Type: 
  Country: None (occurrence: None)
  Receive Date: 20070813
  Receipt Date: 20070801
  Transmission Date: 20080115
  Serious: Yes (Hospitalization, Other)
  Sender: FDA-Public Use
  Company Number: US-AMGEN-STX234002

PATIENT
  Sex: Female

DRUGS (4)
  1. ENBREL [Suspect]
     Indication: RHEUMATOID ARTHRITIS
     Route: 065
     Dates: start: 19990510
  2. METHOTREXATE [Concomitant]
     Route: 065
  3. PREDNISONE TAB [Concomitant]
  4. FOSAMAX [Concomitant]

REACTIONS (6)
  - ALOPECIA [None]
  - ASTHENIA [None]
  - CORONARY ARTERY BYPASS [None]
  - DYSPNOEA [None]
  - MYOCARDIAL INFARCTION [None]
  - PLEURISY [None]
